FAERS Safety Report 5252787-6 (Version None)
Quarter: 2007Q1

REPORT INFORMATION
  Report Type: 
  Country: None (occurrence: None)
  Receive Date: 20070301
  Receipt Date: 20061204
  Transmission Date: 20070707
  Serious: Yes (Hospitalization)
  Sender: FDA-Public Use
  Company Number: US-GLAXOSMITHKLINE-A0630240A

PATIENT
  Age: 65 Year
  Sex: Female

DRUGS (4)
  1. LAMICTAL [Suspect]
     Indication: DRUG USE FOR UNKNOWN INDICATION
     Dosage: 25MG PER DAY
     Route: 048
     Dates: start: 20061103, end: 20061110
  2. DYAZIDE [Concomitant]
  3. LIPITOR [Concomitant]
  4. FOSAMAX [Concomitant]

REACTIONS (2)
  - PRURITUS [None]
  - RASH [None]
